FAERS Safety Report 6767678-9 (Version None)
Quarter: 2010Q2

REPORT INFORMATION
  Report Type: 
  Country: None (occurrence: None)
  Receive Date: 20100614
  Receipt Date: 20100601
  Transmission Date: 20101027
  Serious: Yes (Hospitalization, Other)
  Sender: FDA-Public Use
  Company Number: US-ELI_LILLY_AND_COMPANY-US201006001121

PATIENT
  Age: 76 Year
  Sex: Female

DRUGS (3)
  1. FORTEO [Suspect]
     Indication: OSTEOPOROSIS
     Dosage: 20 UG, DAILY (1/D)
     Dates: start: 20100301
  2. CORTISONE [Concomitant]
     Indication: ASTHMA
  3. SEREVENT [Concomitant]
     Indication: ASTHMA

REACTIONS (8)
  - ASTHENIA [None]
  - COLLAPSE OF LUNG [None]
  - FALL [None]
  - HYPOVENTILATION [None]
  - MALAISE [None]
  - MUSCULOSKELETAL CHEST PAIN [None]
  - PNEUMONIA [None]
  - RIB FRACTURE [None]
